FAERS Safety Report 5828997-3 (Version None)
Quarter: 2008Q3

REPORT INFORMATION
  Report Type: 
  Country: None (occurrence: None)
  Receive Date: 20080731
  Receipt Date: 20080722
  Transmission Date: 20090109
  Serious: Yes (Hospitalization, Other)
  Sender: FDA-Public Use
  Company Number: PHHY2008DE15081

PATIENT

DRUGS (3)
  1. ZOLEDRONIC ACID [Suspect]
     Indication: OSTEOPOROSIS
     Dosage: 5 MG, ONCE/SINGLE
     Route: 042
     Dates: start: 20080414, end: 20080414
  2. CALCIUM [Concomitant]
     Route: 048
  3. VITAMIN D3 [Concomitant]

REACTIONS (9)
  - ABDOMINAL PAIN [None]
  - BLOOD URINE PRESENT [None]
  - JOINT FLUID DRAINAGE [None]
  - JOINT SWELLING [None]
  - MALAISE [None]
  - MYALGIA [None]
  - PYREXIA [None]
  - RENAL PAIN [None]
  - URINARY RETENTION [None]
